FAERS Safety Report 7817420-5 (Version None)
Quarter: 2011Q4

REPORT INFORMATION
  Report Type: 
  Country: None (occurrence: None)
  Receive Date: 20111013
  Receipt Date: 20111004
  Transmission Date: 20120403
  Serious: Yes (Life-Threatening, Hospitalization)
  Sender: FDA-Public Use
  Company Number: CLOF-10729

PATIENT
  Age: 61 Year
  Sex: Male

DRUGS (4)
  1. EVOLTRA (CLOFARABINE) SOLUTION FOR INFUSION [Suspect]
     Indication: ACUTE MYELOID LEUKAEMIA
     Dosage: QDX5, INTRAVENOUS
     Route: 042
     Dates: start: 20070818, end: 20070822
  2. EVOLTRA (CLOFARABINE) SOLUTION FOR INFUSION [Suspect]
     Indication: MYELODYSPLASTIC SYNDROME
     Dosage: QDX5, INTRAVENOUS
     Route: 042
     Dates: start: 20070818, end: 20070822
  3. DAUNORUBICIN HCL [Suspect]
     Indication: MYELODYSPLASTIC SYNDROME
     Dates: start: 20070818, end: 20070822
  4. DAUNORUBICIN HCL [Suspect]
     Indication: ACUTE MYELOID LEUKAEMIA
     Dates: start: 20070818, end: 20070822

REACTIONS (4)
  - NEUTROPENIC SEPSIS [None]
  - BLOOD BICARBONATE DECREASED [None]
  - RENAL FAILURE ACUTE [None]
  - BLOOD POTASSIUM DECREASED [None]
